FAERS Safety Report 6006747-8 (Version None)
Quarter: 2008Q4

REPORT INFORMATION
  Report Type: 
  Country: None (occurrence: None)
  Receive Date: 20081217
  Receipt Date: 20081208
  Transmission Date: 20090506
  Serious: Yes (Hospitalization, Disabling)
  Sender: FDA-Public Use
  Company Number: BE-ABBOTT-08P-013-0491682-00

PATIENT
  Sex: Male

DRUGS (2)
  1. HUMIRA [Suspect]
     Indication: PSORIATIC ARTHROPATHY
     Dates: start: 20080309
  2. LEFLUNOMIDE [Concomitant]
     Indication: PSORIATIC ARTHROPATHY

REACTIONS (6)
  - AMNESIA [None]
  - BLINDNESS [None]
  - CEREBRAL DISORDER [None]
  - CONFUSIONAL STATE [None]
  - DIZZINESS [None]
  - MULTIPLE SCLEROSIS [None]
